FAERS Safety Report 6024852-7 (Version None)
Quarter: 2008Q4

REPORT INFORMATION
  Report Type: 
  Country: None (occurrence: None)
  Receive Date: 20081231
  Receipt Date: 20081223
  Transmission Date: 20090506
  Serious: Yes (Hospitalization)
  Sender: FDA-Public Use
  Company Number: US-TYCO HEALTHCARE/MALLINCKRODT-T200802160

PATIENT
  Age: 83 Year
  Sex: Male
  Weight: 68.9 kg

DRUGS (1)
  1. RESTORIL [Suspect]

REACTIONS (2)
  - HEAD INJURY [None]
  - SYNCOPE [None]
